FAERS Safety Report 5935447-5 (Version None)
Quarter: 2008Q4

REPORT INFORMATION
  Report Type: 
  Country: None (occurrence: None)
  Receive Date: 20081028
  Receipt Date: 20081013
  Transmission Date: 20090506
  Serious: Yes (Other)
  Sender: FDA-Public Use
  Company Number: 2008BI027436

PATIENT
  Age: 53 Year
  Sex: Female

DRUGS (12)
  1. TYSABRI [Suspect]
     Indication: MULTIPLE SCLEROSIS
     Dosage: 300 MG; QM; IV
     Route: 030
     Dates: start: 20080812
  2. TOPAMAX [Concomitant]
  3. ADDERAL XL [Concomitant]
  4. AMANTADINE HCL [Concomitant]
  5. AMARYL [Concomitant]
  6. ARMOUR THYROID [Concomitant]
  7. DEPAKOTE [Concomitant]
  8. GLUCOPHAGE XR [Concomitant]
  9. LISINOPRIL [Concomitant]
  10. ZANAFLEX [Concomitant]
  11. BACLOFEN [Concomitant]
  12. BETASERON [Concomitant]

REACTIONS (9)
  - ASTHENIA [None]
  - BLOOD GLUCOSE DECREASED [None]
  - CONDITION AGGRAVATED [None]
  - CONVULSION [None]
  - CRYING [None]
  - DYSPHEMIA [None]
  - FATIGUE [None]
  - HYPOTENSION [None]
  - SYNCOPE [None]
